FAERS Safety Report 6703919-1 (Version None)
Quarter: 2010Q2

REPORT INFORMATION
  Report Type: 
  Country: None (occurrence: None)
  Receive Date: 20100430
  Receipt Date: 20100416
  Transmission Date: 20101027
  Serious: Yes (Other)
  Sender: FDA-Public Use
  Company Number: PL-BAYER-201022748GPV

PATIENT

DRUGS (2)
  1. FLUDARABINE [Suspect]
     Indication: CHRONIC LYMPHOCYTIC LEUKAEMIA
     Dosage: FOR DAYS 1, 2 AND 3, REPEATED EVERY 28 DAYS FOR UP TO 6 CYCLES
     Route: 042
  2. CYCLOPHOSPHAMIDE [Suspect]
     Indication: CHRONIC LYMPHOCYTIC LEUKAEMIA
     Dosage: 30 TO 60 MINUTES FOR DAYS 1, 2 AND 3, REPEATED EVERY 28 DAYS FOR UP TO 6 CYCLES
     Route: 042

REACTIONS (1)
  - RENAL CANCER [None]
